FAERS Safety Report 24607457 (Version 1)
Quarter: 2024Q4

REPORT INFORMATION
  Report Type: Spontaneous
  Country: GB (occurrence: GB)
  Receive Date: 20241112
  Receipt Date: 20241112
  Transmission Date: 20250114
  Serious: Yes (Other)
  Sender: NOVARTIS
  Company Number: GB-002147023-NVSC2024GB215283

PATIENT
  Age: 37 Year
  Sex: Female

DRUGS (1)
  1. KESIMPTA [Suspect]
     Active Substance: OFATUMUMAB
     Indication: Multiple sclerosis
     Dosage: UNK
     Route: 065
     Dates: start: 202409

REACTIONS (7)
  - Premenstrual syndrome [Unknown]
  - Fatigue [Unknown]
  - Dysmenorrhoea [Unknown]
  - Abdominal distension [Unknown]
  - Multiple sclerosis relapse [Unknown]
  - Infection [Unknown]
  - Stress [Unknown]
